FAERS Safety Report 9841953 (Version 1)
Quarter: 2014Q1

REPORT INFORMATION
  Report Type: Spontaneous
  Country: GB (occurrence: GB)
  Receive Date: 20140124
  Receipt Date: 20140124
  Transmission Date: 20141002
  Serious: Yes (Hospitalization)
  Sender: FDA-Public Use
  Company Number: GB-AMGEN-GBRSP2014003584

PATIENT
  Sex: Female

DRUGS (5)
  1. NEULASTA [Suspect]
     Indication: PRODUCT USED FOR UNKNOWN INDICATION
     Dosage: UNK
     Route: 065
  2. DOCETAXEL [Concomitant]
     Dosage: UNK
  3. FLUOROURACIL                       /00098802/ [Concomitant]
     Dosage: UNK
  4. EPIRUBICIN [Concomitant]
     Dosage: UNK
  5. CYCLOPHOSPHAMIDE [Concomitant]
     Dosage: UNK

REACTIONS (1)
  - Bone pain [Unknown]
